FAERS Safety Report 7639219-5 (Version None)
Quarter: 2011Q3

REPORT INFORMATION
  Report Type: 
  Country: None (occurrence: None)
  Receive Date: 20110725
  Receipt Date: 20110725
  Transmission Date: 20111222
  Serious: Yes (Hospitalization)
  Sender: FDA-Public Use
  Company Number: None

PATIENT
  Sex: Female
  Weight: 61.2 kg

DRUGS (2)
  1. ETOPOSIDE [Suspect]
     Dosage: 166MG
     Dates: end: 20110624
  2. CISPLATIN [Suspect]
     Dosage: 125MG
     Dates: end: 20110622

REACTIONS (2)
  - WHITE BLOOD CELL COUNT ABNORMAL [None]
  - NEUTROPHIL COUNT ABNORMAL [None]
